FAERS Safety Report 6652511-6 (Version None)
Quarter: 2010Q1

REPORT INFORMATION
  Report Type: 
  Country: None (occurrence: None)
  Receive Date: 20100325
  Receipt Date: 20100325
  Transmission Date: 20100710
  Serious: Yes (Other)
  Sender: FDA-Public Use
  Company Number: None

PATIENT
  Age: 7 Year
  Sex: Male
  Weight: 58.9676 kg

DRUGS (2)
  1. DEXMETHYLPHENIDATE HCL [Suspect]
     Indication: ATTENTION DEFICIT/HYPERACTIVITY DISORDER
     Dosage: 10MG  2POQD PO
     Route: 048
     Dates: start: 20071221
  2. DEPAKOTE [Concomitant]

REACTIONS (1)
  - ALOPECIA [None]
